FAERS Safety Report 7131039-3 (Version None)
Quarter: 2010Q4

REPORT INFORMATION
  Report Type: 
  Country: None (occurrence: None)
  Receive Date: 20101201
  Receipt Date: 20101125
  Transmission Date: 20110411
  Serious: Yes (Other)
  Sender: FDA-Public Use
  Company Number: B0686869A

PATIENT
  Sex: Female

DRUGS (1)
  1. FLIXOTIDE DISKUS [Suspect]
     Indication: ASTHMA
     Route: 065
     Dates: start: 20101118, end: 20101119

REACTIONS (4)
  - DYSPNOEA [None]
  - LARYNGEAL OEDEMA [None]
  - MALAISE [None]
  - SENSATION OF FOREIGN BODY [None]
